FAERS Safety Report 7389800-6 (Version None)
Quarter: 2011Q1

REPORT INFORMATION
  Report Type: 
  Country: None (occurrence: None)
  Receive Date: 20110325
  Receipt Date: 20110314
  Transmission Date: 20110831
  Serious: Yes (Hospitalization)
  Sender: FDA-Public Use
  Company Number: TIR-00431

PATIENT
  Age: 79 Year
  Sex: Male

DRUGS (1)
  1. LEVOTHYROXINE SODIUM [Suspect]
     Dosage: 37.5 UG ORAL
     Route: 048
     Dates: start: 20070101

REACTIONS (12)
  - HYPOTENSION [None]
  - BLOOD GLUCOSE INCREASED [None]
  - APATHY [None]
  - HYPOVOLAEMIA [None]
  - HAEMOGLOBIN DECREASED [None]
  - HYPERHIDROSIS [None]
  - HYPOPITUITARISM [None]
  - HYPONATRAEMIA [None]
  - ATRIAL FIBRILLATION [None]
  - ADRENAL INSUFFICIENCY [None]
  - ABDOMINAL MASS [None]
  - TACHYARRHYTHMIA [None]
